FAERS Safety Report 9351442 (Version 1)
Quarter: 2013Q2

REPORT INFORMATION
  Report Type: Spontaneous
  Country: US (occurrence: US)
  Receive Date: 20130617
  Receipt Date: 20130617
  Transmission Date: 20140414
  Serious: No
  Sender: FDA-Public Use
  Company Number: US-ASTRAZENECA-2013SE42596

PATIENT
  Sex: Female

DRUGS (3)
  1. SEROQUEL XR [Suspect]
     Route: 048
     Dates: start: 201301, end: 20130601
  2. CELEXA [Concomitant]
  3. COGENTIN [Concomitant]

REACTIONS (2)
  - Drug intolerance [Unknown]
  - Oculogyric crisis [Unknown]
